FAERS Safety Report 12204939 (Version 1)
Quarter: 2016Q1

REPORT INFORMATION
  Report Type: Spontaneous
  Country: US (occurrence: US)
  Receive Date: 20160323
  Receipt Date: 20160323
  Transmission Date: 20160526
  Serious: No
  Sender: FDA-Public Use
  Company Number: US-MYLANLABS-2015M1028914

PATIENT
  Age: 75 Year
  Sex: Female

DRUGS (3)
  1. CHLORTHALIDONE TABLETS USP [Suspect]
     Active Substance: CHLORTHALIDONE
     Indication: HYPERCALCAEMIA
     Dosage: 12.5 MG, QD
     Route: 048
     Dates: start: 20150821, end: 20150824
  2. CHLORTHALIDONE TABLETS USP [Suspect]
     Active Substance: CHLORTHALIDONE
     Indication: HYPERKALAEMIA
  3. CHLORTHALIDONE TABLETS USP [Suspect]
     Active Substance: CHLORTHALIDONE
     Indication: DIURETIC THERAPY

REACTIONS (5)
  - Palpitations [Recovered/Resolved]
  - Urine output decreased [Not Recovered/Not Resolved]
  - Dizziness [Recovered/Resolved]
  - Vertigo [Recovered/Resolved]
  - Asthenia [Not Recovered/Not Resolved]

NARRATIVE: CASE EVENT DATE: 20150821
